FAERS Safety Report 5945075-3 (Version None)
Quarter: 2008Q4

REPORT INFORMATION
  Report Type: 
  Country: None (occurrence: None)
  Receive Date: 20081107
  Receipt Date: 20081103
  Transmission Date: 20090506
  Serious: Yes (Hospitalization)
  Sender: FDA-Public Use
  Company Number: FR-ABBOTT-08P-056-0485394-00

PATIENT
  Sex: Female
  Weight: 60 kg

DRUGS (6)
  1. ZECLAR TABLETS [Suspect]
     Indication: ATYPICAL MYCOBACTERIAL INFECTION
     Route: 048
     Dates: start: 20080530, end: 20080726
  2. RIFABUTINE [Suspect]
     Indication: ATYPICAL MYCOBACTERIAL INFECTION
     Route: 048
     Dates: start: 20080530, end: 20080726
  3. ISONIAZID [Suspect]
     Indication: ATYPICAL MYCOBACTERIAL INFECTION
     Dosage: 150MG DAILY THEN 50MG DAILY
     Route: 048
     Dates: start: 20080530
  4. ISONIAZID [Suspect]
     Route: 048
     Dates: end: 20080726
  5. ETHAMBUTOL HYDROCHLORIDE [Suspect]
     Indication: ATYPICAL MYCOBACTERIAL INFECTION
     Route: 048
     Dates: start: 20080530, end: 20080726
  6. MOXIFLOXACINE [Concomitant]
     Indication: DRUG USE FOR UNKNOWN INDICATION
     Dates: start: 20080530, end: 20080724

REACTIONS (10)
  - ARTHRALGIA [None]
  - EOSINOPHILIA [None]
  - EYE PAIN [None]
  - HEADACHE [None]
  - MALAISE [None]
  - MOUTH ULCERATION [None]
  - NECK PAIN [None]
  - RASH MACULO-PAPULAR [None]
  - TORTICOLLIS [None]
  - VOMITING [None]
